FAERS Safety Report 7518093-1 (Version None)
Quarter: 2011Q2

REPORT INFORMATION
  Report Type: 
  Country: None (occurrence: None)
  Receive Date: 20110531
  Receipt Date: 20110531
  Transmission Date: 20111010
  Serious: Yes (Life-Threatening)
  Sender: FDA-Public Use
  Company Number: None

PATIENT
  Age: 53 Year
  Sex: Male
  Weight: 87.2 kg

DRUGS (10)
  1. LACTULOSE SUSPENSION [Concomitant]
  2. ZOFRAN [Concomitant]
  3. TIVOZANIB [Suspect]
     Indication: COLORECTAL CANCER
     Dosage: 1.0 MG PO QD
     Route: 048
     Dates: start: 20110513, end: 20110527
  4. COMPAZINE [Concomitant]
  5. OXYCODONE HCL [Concomitant]
  6. COLACE [Concomitant]
  7. MS CONTIN [Concomitant]
  8. EVROLIMUS [Suspect]
     Indication: COLORECTAL CANCER
     Dosage: 10.0 MG PO QD
     Route: 048
     Dates: start: 20110513, end: 20110527
  9. SENNA-MINT WAF [Concomitant]
  10. ATIVAN [Concomitant]

REACTIONS (1)
  - PLATELET COUNT DECREASED [None]
